FAERS Safety Report 8464353-X (Version None)
Quarter: 2012Q2

REPORT INFORMATION
  Report Type: 
  Country: None (occurrence: None)
  Receive Date: 20120626
  Receipt Date: 20120620
  Transmission Date: 20120825
  Serious: Yes (Other)
  Sender: FDA-Public Use
  Company Number: US-BRISTOL-MYERS SQUIBB COMPANY-16650087

PATIENT
  Age: 54 Year
  Sex: Female

DRUGS (4)
  1. CELEBREX [Concomitant]
  2. ORENCIA [Suspect]
     Indication: RHEUMATOID ARTHRITIS
     Dosage: ALSO ON 08NOV2011, INTER: 10MAR12, RESTART 10MAY12 LAST INFUSION WAS ON 09JUN2012
     Route: 042
     Dates: start: 20110924
  3. METHOTREXATE [Concomitant]
  4. PREDNISOLONE [Concomitant]

REACTIONS (2)
  - FOOT OPERATION [None]
  - DRUG INEFFECTIVE [None]
